FAERS Safety Report 13465579 (Version 3)
Quarter: 2017Q2

REPORT INFORMATION
  Report Type: Report from Study
  Country: None (occurrence: CA)
  Receive Date: 20170421
  Receipt Date: 20170512
  Transmission Date: 20170830
  Serious: Yes (Hospitalization, Other)
  Sender: FDA-Public Use
  Company Number: CA-ABBVIE-17K-028-1950687-00

PATIENT
  Sex: Male
  Weight: 88.53 kg

DRUGS (1)
  1. HUMIRA [Suspect]
     Active Substance: ADALIMUMAB
     Indication: PSORIASIS
     Route: 058
     Dates: start: 20150603, end: 2016

REACTIONS (4)
  - Jaundice [Unknown]
  - Hepatic cirrhosis [Recovered/Resolved]
  - Malaise [Unknown]
  - Confusional state [Unknown]

NARRATIVE: CASE EVENT DATE: 2015
